FAERS Safety Report 21320965 (Version 2)
Quarter: 2022Q3

REPORT INFORMATION
  Report Type: Spontaneous
  Country: NO (occurrence: NO)
  Receive Date: 20220912
  Receipt Date: 20220923
  Transmission Date: 20221027
  Serious: Yes (Hospitalization, Other)
  Sender: FDA-Public Use
  Company Number: NO-CELLTRION INC.-2022NO014494

PATIENT

DRUGS (3)
  1. RITUXIMAB [Interacting]
     Active Substance: RITUXIMAB
     Indication: Relapsing-remitting multiple sclerosis
     Dosage: 500 MILLIGRAM INFUSIONS EVERY 6 MONTHS
  2. COMIRNATY [Interacting]
     Active Substance: TOZINAMERAN
     Indication: COVID-19 immunisation
     Route: 042
  3. SOTROVIMAB [Concomitant]
     Active Substance: SOTROVIMAB
     Indication: COVID-19
     Dosage: 500 MILLIGRAM WAS ADMINISTERED ON DAY 29
     Route: 042

REACTIONS (6)
  - COVID-19 pneumonia [Unknown]
  - COVID-19 [Recovered/Resolved]
  - Vaccination failure [Recovered/Resolved]
  - SARS-CoV-2 antibody test negative [Unknown]
  - Drug interaction [Unknown]
  - Off label use [Unknown]

NARRATIVE: CASE EVENT DATE: 20220101
